FAERS Safety Report 16715864 (Version 3)
Quarter: 2019Q3

REPORT INFORMATION
  Report Type: Spontaneous
  Country: US (occurrence: US)
  Receive Date: 20190819
  Receipt Date: 20190925
  Transmission Date: 20191005
  Serious: No
  Sender: FDA-Public Use
  Company Number: US-PFIZER INC-2019353062

PATIENT
  Age: 62 Year
  Sex: Female
  Weight: 77.98 kg

DRUGS (1)
  1. INLYTA [Suspect]
     Active Substance: AXITINIB
     Indication: RENAL CANCER
     Dosage: 5 MG, 2X/DAY
     Route: 048
     Dates: start: 201905

REACTIONS (8)
  - Anger [Unknown]
  - Dizziness [Unknown]
  - Neoplasm progression [Unknown]
  - Infection [Unknown]
  - Fall [Unknown]
  - Blood pressure decreased [Unknown]
  - Drug hypersensitivity [Unknown]
  - Discharge [Unknown]
